FAERS Safety Report 5118391-5 (Version None)
Quarter: 2006Q3

REPORT INFORMATION
  Report Type: 
  Country: None (occurrence: None)
  Receive Date: 20060926
  Receipt Date: 20060908
  Transmission Date: 20061208
  Serious: Yes (Hospitalization)
  Sender: FDA-Public Use
  Company Number: DK200608001437

PATIENT
  Age: 56 Year
  Sex: Female

DRUGS (5)
  1. DULOXETINE HYDROCHLORIDE(DULEXETINE HYDROCHLORIDE) CAPSULE [Suspect]
     Indication: DEPRESSION
     Dosage: 60 MG, ORAL
     Route: 048
  2. TAMOXIFEN CITRATE [Concomitant]
  3. ACETAMINOPHEN [Concomitant]
  4. PINEX /DEN/ (PARACETAMOL) [Concomitant]
  5. DOLOL (TRAMADOL) [Concomitant]

REACTIONS (1)
  - SKIN HAEMORRHAGE [None]
